FAERS Safety Report 8276895 (Version 2)
Quarter: 2012Q4

REPORT INFORMATION
  Report Type: 
  Country: MX (occurrence: MX)
  Receive Date: 20111206
  Receipt Date: 20120906
  Transmission Date: 20130627
  Serious: Yes (Other)
  Sender: FDA-Public Use
  Company Number: PHHY2011MX105303

PATIENT
  Age: 66 Year
  Sex: Female

DRUGS (5)
  1. CO-DIOVAN [Suspect]
     Indication: HYPERTENSION
     Dosage: 1 DF (160/12.5 mg) once per day at the morning
     Dates: start: 20100511
  2. DIOVAN [Suspect]
     Indication: HYPERTENSION
     Dosage: 80 mg once by day at nights
     Dates: start: 20100511
  3. ADALAT [Concomitant]
     Indication: HYPERTENSION
     Dosage: 1 DF (1 tablet taken occasionally)
     Dates: start: 201105
  4. AMLODIPINE [Concomitant]
     Dosage: Once by day
     Dates: start: 201005, end: 201112
  5. METOPROLOL [Concomitant]
     Dosage: Half tablet daily at the mornings

REACTIONS (4)
  - Deafness transitory [Recovered/Resolved]
  - Hypotension [Recovered/Resolved]
  - Dizziness [Recovered/Resolved]
  - Asthenia [Recovered/Resolved]
